FAERS Safety Report 13065539 (Version 2)
Quarter: 2017Q1

REPORT INFORMATION
  Report Type: Report from Study
  Country: US (occurrence: US)
  Receive Date: 20161227
  Receipt Date: 20170112
  Transmission Date: 20170428
  Serious: Yes (Hospitalization)
  Sender: FDA-Public Use
  Company Number: US-TAKEDA-2016TUS022988

PATIENT
  Age: 67 Year
  Sex: Female

DRUGS (1)
  1. VEDOLIZUMAB [Suspect]
     Active Substance: VEDOLIZUMAB
     Indication: CROHN^S DISEASE
     Dosage: 300 MG, UNK
     Route: 042

REACTIONS (4)
  - Small intestinal resection [Recovering/Resolving]
  - Hospitalisation [Unknown]
  - Ileostomy [Recovering/Resolving]
  - Intestinal adhesion lysis [Recovering/Resolving]
